FAERS Safety Report 6419214-4 (Version None)
Quarter: 2009Q4

REPORT INFORMATION
  Report Type: 
  Country: None (occurrence: None)
  Receive Date: 20091029
  Receipt Date: 20091019
  Transmission Date: 20100525
  Serious: Yes (Hospitalization)
  Sender: FDA-Public Use
  Company Number: GB-NOVOPROD-291486

PATIENT
  Sex: Female
  Weight: 77.4 kg

DRUGS (1)
  1. NOVORAPID [Suspect]
     Indication: TYPE 1 DIABETES MELLITUS
     Dosage: 20 IU, QD (15+5)
     Route: 058
     Dates: start: 20020221

REACTIONS (2)
  - EXPIRED DRUG ADMINISTERED [None]
  - KETOSIS [None]
